FAERS Safety Report 23118540 (Version 4)
Quarter: 2023Q4

REPORT INFORMATION
  Report Type: Spontaneous
  Country: US (occurrence: US)
  Receive Date: 20231028
  Receipt Date: 20231124
  Transmission Date: 20240110
  Serious: No
  Sender: FDA-Public Use
  Company Number: US-HETERO-HET2023US03049

PATIENT
  Sex: Male
  Weight: 72 kg

DRUGS (1)
  1. DABIGATRAN ETEXILATE [Suspect]
     Active Substance: DABIGATRAN ETEXILATE
     Indication: Product used for unknown indication
     Dosage: 150 MILLIGRAM, B.I.D.
     Route: 048

REACTIONS (2)
  - Somnolence [Recovered/Resolved]
  - Abdominal discomfort [Recovered/Resolved]
